FAERS Safety Report 23880104 (Version 2)
Quarter: 2025Q4

REPORT INFORMATION
  Report Type: Spontaneous
  Country: US (occurrence: US)
  Receive Date: 20240521
  Receipt Date: 20251117
  Transmission Date: 20260118
  Serious: No
  Sender: GALDERMA
  Company Number: US-GALDERMA-US2024007082

PATIENT

DRUGS (3)
  1. PROACTIV MD ADAPALENE ACNE TREATMENT [Suspect]
     Active Substance: ADAPALENE
     Indication: Product used for unknown indication
     Dosage: 1 DOSAGE FORM, QD DIME SIZED
     Route: 061
     Dates: start: 2022, end: 2022
  2. COSMETICS [Concomitant]
     Active Substance: COSMETICS
     Indication: Product used for unknown indication
     Dosage: 1 DOSAGE FORM, QD DIME SIZED
     Route: 061
     Dates: start: 2022, end: 2022
  3. COSMETICS [Concomitant]
     Active Substance: COSMETICS
     Indication: Product used for unknown indication
     Dosage: 1 DOSAGE FORM, QD DIME SIZED
     Route: 061
     Dates: start: 2022, end: 2022

REACTIONS (5)
  - Skin burning sensation [Recovered/Resolved]
  - Skin irritation [Recovered/Resolved]
  - Sensitive skin [Recovered/Resolved]
  - Pruritus [Recovered/Resolved]
  - Drug ineffective [Recovered/Resolved]

NARRATIVE: CASE EVENT DATE: 20220101
